FAERS Safety Report 9382083 (Version 3)
Quarter: 2013Q3

REPORT INFORMATION
  Report Type: Spontaneous
  Country: US (occurrence: US)
  Receive Date: 20130703
  Receipt Date: 20130809
  Transmission Date: 20140515
  Serious: Yes (Hospitalization)
  Sender: FDA-Public Use
  Company Number: US-GILEAD-2013-0078354

PATIENT
  Sex: Male

DRUGS (3)
  1. LETAIRIS [Suspect]
     Indication: PULMONARY HYPERTENSION
     Dosage: 10 MG, QD
     Dates: start: 20111208
  2. LETAIRIS [Suspect]
     Indication: SARCOIDOSIS
  3. REVATIO [Concomitant]

REACTIONS (2)
  - Swelling [Unknown]
  - Dyspnoea [Unknown]
